FAERS Safety Report 19719057 (Version 1)
Quarter: 2021Q3

REPORT INFORMATION
  Report Type: Spontaneous
  Country: US (occurrence: US)
  Receive Date: 20210818
  Receipt Date: 20210818
  Transmission Date: 20211014
  Serious: Yes (Death)
  Sender: FDA-Public Use
  Company Number: None

PATIENT
  Age: 52 Year
  Sex: Female

DRUGS (13)
  1. ARMODAFINIL 250MG [Concomitant]
     Active Substance: ARMODAFINIL
  2. WELLBUTRIN XL [Concomitant]
     Active Substance: BUPROPION HYDROCHLORIDE
  3. PROAIR HFA [Concomitant]
     Active Substance: ALBUTEROL SULFATE
  4. OXALIPLATIN SDV 100MG/20ML [Suspect]
     Active Substance: OXALIPLATIN
     Indication: BREAST CANCER FEMALE
     Dosage: OTHER FREQUENCY:OTHER;?
     Route: 041
     Dates: start: 20210426, end: 20210809
  5. ATENOLOL 25MG [Concomitant]
     Active Substance: ATENOLOL
  6. PROZAC [Concomitant]
     Active Substance: FLUOXETINE HYDROCHLORIDE
  7. NEXIUM [Concomitant]
     Active Substance: ESOMEPRAZOLE MAGNESIUM
  8. PREGABALIN 300MG [Concomitant]
     Active Substance: PREGABALIN
  9. XGEVA [Concomitant]
     Active Substance: DENOSUMAB
  10. CYTOMEL [Concomitant]
     Active Substance: LIOTHYRONINE SODIUM
  11. SYNTHROID [Concomitant]
     Active Substance: LEVOTHYROXINE SODIUM
  12. NEULASTA ONPRO 6MG [Concomitant]
  13. VITAMIN D3 1000IU [Concomitant]

REACTIONS (1)
  - Death [None]

NARRATIVE: CASE EVENT DATE: 20210809
